FAERS Safety Report 8704759 (Version 2)
Quarter: 2013Q4

REPORT INFORMATION
  Report Type: Spontaneous
  Country: US (occurrence: US)
  Receive Date: 20120803
  Receipt Date: 20131101
  Transmission Date: 20140711
  Serious: No
  Sender: FDA-Public Use
  Company Number: US-009507513-1207USA006562

PATIENT
  Sex: Male

DRUGS (3)
  1. MIRALAX [Suspect]
     Indication: MEDICAL OBSERVATION
     Dosage: UNK, QD
     Route: 048
  2. MIRALAX [Suspect]
     Indication: PRODUCT USED FOR UNKNOWN INDICATION
  3. ANALGESIC (UNSPECIFIED) [Concomitant]
     Indication: PAIN

REACTIONS (3)
  - Weight decreased [Unknown]
  - Abnormal faeces [Unknown]
  - Incorrect drug administration duration [Unknown]
